FAERS Safety Report 18539947 (Version 2)
Quarter: 2020Q4

REPORT INFORMATION
  Report Type: Spontaneous
  Country: US (occurrence: US)
  Receive Date: 20201124
  Receipt Date: 20201203
  Transmission Date: 20210114
  Serious: Yes (Hospitalization)
  Sender: FDA-Public Use
  Company Number: US-PFIZER INC-2020462038

PATIENT
  Age: 65 Year
  Sex: Male
  Weight: 78.02 kg

DRUGS (1)
  1. VIAGRA [Suspect]
     Active Substance: SILDENAFIL CITRATE
     Indication: ERECTILE DYSFUNCTION
     Dosage: 50 MG (HE CUT IN HALF BY MOUTH)
     Route: 048
     Dates: start: 2017

REACTIONS (1)
  - Prostate cancer [Unknown]
